FAERS Safety Report 13307709 (Version 4)
Quarter: 2021Q1

REPORT INFORMATION
  Report Type: Report from Study
  Country: US (occurrence: US)
  Receive Date: 20170308
  Receipt Date: 20210113
  Transmission Date: 20210419
  Serious: Yes (Other)
  Sender: FDA-Public Use
  Company Number: US-BAUSCH-BL-2017-005760

PATIENT
  Age: 78 Year
  Sex: Female
  Weight: 47.22 kg

DRUGS (21)
  1. ONDASETRON [Concomitant]
     Active Substance: ONDANSETRON
     Indication: PRODUCT USED FOR UNKNOWN INDICATION
     Dosage: 1 TAB EVERY 8 HOURS ON TOP OF THE TONGUE WHERE THEY WILL DISSOLVE?DISINTEGRATING TAB
     Route: 050
     Dates: start: 20190828
  2. WELCHOL [Concomitant]
     Active Substance: COLESEVELAM HYDROCHLORIDE
     Indication: PRODUCT USED FOR UNKNOWN INDICATION
     Dosage: 1?2 TABLETS EVERY NOON WITH A MEAL AND LIQUID, NO OTHER MEDICATION 2 HOURS BEFORE OR AFTER THIS
     Route: 048
     Dates: start: 20200922, end: 20201021
  3. ALPRAZOLAM. [Concomitant]
     Active Substance: ALPRAZOLAM
     Indication: PRODUCT USED FOR UNKNOWN INDICATION
     Dosage: AS NEEDED
     Route: 048
  4. PROTONIX [Concomitant]
     Active Substance: PANTOPRAZOLE SODIUM
     Indication: PRODUCT USED FOR UNKNOWN INDICATION
     Dosage: ONE HOUR PRIOR TO LAST MEAL
     Route: 048
     Dates: start: 20200602
  5. VITAMIN B12 [Concomitant]
     Active Substance: CYANOCOBALAMIN
     Indication: PRODUCT USED FOR UNKNOWN INDICATION
  6. LIALDA [Suspect]
     Active Substance: MESALAMINE
     Indication: COLITIS ULCERATIVE
     Route: 065
  7. CALCIUM [Concomitant]
     Active Substance: CALCIUM
     Indication: SUPPLEMENTATION THERAPY
     Route: 048
  8. CELEBREX [Concomitant]
     Active Substance: CELECOXIB
     Indication: PRODUCT USED FOR UNKNOWN INDICATION
     Dosage: AS NEEDED
     Route: 048
  9. MIRTAZAPINE. [Concomitant]
     Active Substance: MIRTAZAPINE
     Indication: PRODUCT USED FOR UNKNOWN INDICATION
     Dosage: 0.5 TABLET BEFORE BEDTIME
     Route: 048
  10. ATORVASTATIN [Concomitant]
     Active Substance: ATORVASTATIN
     Indication: PRODUCT USED FOR UNKNOWN INDICATION
     Route: 048
  11. PROBIOTIC [Concomitant]
     Active Substance: PROBIOTICS NOS
     Indication: PRODUCT USED FOR UNKNOWN INDICATION
  12. VISBIOME [Concomitant]
     Indication: PRODUCT USED FOR UNKNOWN INDICATION
     Dosage: 112.5 BILLION CELL CAPSULE
     Route: 048
     Dates: start: 20190807
  13. WOMENS MULTIVITAMIN [Concomitant]
     Indication: PRODUCT USED FOR UNKNOWN INDICATION
  14. APRISO [Suspect]
     Active Substance: MESALAMINE
     Indication: COLITIS ULCERATIVE
     Dosage: IN THE MORNING
     Route: 048
     Dates: start: 2010
  15. APRISO [Suspect]
     Active Substance: MESALAMINE
     Dosage: IN THE MORNING
     Route: 048
     Dates: start: 20190327
  16. VITAMINS [Concomitant]
     Active Substance: VITAMINS
     Indication: PRODUCT USED FOR UNKNOWN INDICATION
     Route: 048
  17. CHOLESTYRAMINE. [Concomitant]
     Active Substance: CHOLESTYRAMINE
     Indication: PRODUCT USED FOR UNKNOWN INDICATION
     Dosage: POWDER FOR SUSPENSION IN PACKET 4 GRAMS, DISSOLVED IN 2 TO 6 HOURS OUNCES OF WATER OR NON?CARBONATED
     Route: 048
     Dates: start: 20161019
  18. PROMETHAZINE [Concomitant]
     Active Substance: PROMETHAZINE HYDROCHLORIDE
     Indication: PRODUCT USED FOR UNKNOWN INDICATION
     Dosage: 1 TABLET EVERY 4?6 HOURS AS NEEDED
     Dates: start: 20200817
  19. COLESEVELAM [Concomitant]
     Active Substance: COLESEVELAM
     Indication: PRODUCT USED FOR UNKNOWN INDICATION
     Dosage: 1?2 TABLETS WITH NOON MEAL NO OTHER MEDICATION 2 HOURS BEFORE OR AFTER
     Route: 048
     Dates: start: 20200922, end: 20201021
  20. AMIODARONE [Concomitant]
     Active Substance: AMIODARONE
     Indication: PRODUCT USED FOR UNKNOWN INDICATION
     Route: 048
  21. PROMETHAZINE [Concomitant]
     Active Substance: PROMETHAZINE HYDROCHLORIDE
     Dosage: 1 TABLET EVERY 4?6 HOURS AS NEEDED
     Route: 048

REACTIONS (10)
  - Neuropathy peripheral [Not Recovered/Not Resolved]
  - Glomerular filtration rate decreased [Unknown]
  - Diarrhoea [Unknown]
  - Adrenomegaly [Unknown]
  - Malaise [Unknown]
  - Gastritis [Unknown]
  - Fatigue [Unknown]
  - Renal cyst [Unknown]
  - Blood potassium decreased [Unknown]
  - Nausea [Unknown]

NARRATIVE: CASE EVENT DATE: 20161006
